APPROVED DRUG PRODUCT: OLANZAPINE
Active Ingredient: OLANZAPINE
Strength: 5MG
Dosage Form/Route: TABLET, ORALLY DISINTEGRATING;ORAL
Application: A090881 | Product #001
Applicant: SUN PHARMACEUTICAL INDUSTRIES LTD
Approved: Feb 28, 2012 | RLD: No | RS: No | Type: DISCN